FAERS Safety Report 8988127 (Version 2)
Quarter: 2013Q1

REPORT INFORMATION
  Report Type: Spontaneous
  Country: US (occurrence: US)
  Receive Date: 20121227
  Receipt Date: 20130201
  Transmission Date: 20140127
  Serious: Yes (Other)
  Sender: FDA-Public Use
  Company Number: US-PERRIGO-12US010959

PATIENT
  Age: 15 Year
  Sex: Female
  Weight: 77.1 kg

DRUGS (1)
  1. NITETIME FREE LIQGL 977 [Suspect]
     Indication: NASOPHARYNGITIS
     Dosage: 2 SOFTGELS, SINGLE
     Route: 048
     Dates: start: 20121212, end: 20121212

REACTIONS (2)
  - Convulsion [Recovered/Resolved]
  - Condition aggravated [Unknown]
